FAERS Safety Report 15372057 (Version 2)
Quarter: 2018Q4

REPORT INFORMATION
  Report Type: Spontaneous
  Country: US (occurrence: US)
  Receive Date: 20180911
  Receipt Date: 20181002
  Transmission Date: 20190204
  Serious: No
  Sender: FDA-Public Use
  Company Number: US-TEVA-2018-US-952785

PATIENT
  Sex: Male

DRUGS (28)
  1. LEVALBUTEROL TEVA [Suspect]
     Active Substance: LEVALBUTEROL
     Dosage: DOSE: 1.25MG/3ML, 1 VIAL VIA NEUBULIZER
     Route: 065
     Dates: start: 20180825, end: 20180829
  2. SYNTHROID [Concomitant]
     Active Substance: LEVOTHYROXINE SODIUM
     Dosage: 75 MICROGRAM DAILY;
  3. JANUVIA [Concomitant]
     Active Substance: SITAGLIPTIN PHOSPHATE
     Dosage: 100 MILLIGRAM DAILY;
  4. GLUCOSAMINE/CHONDROITIN [Concomitant]
     Dosage: 1500MG/11 03MG
  5. NYSTATIN. [Concomitant]
     Active Substance: NYSTATIN
     Dosage: SUSPENSION,BID-QID
  6. CELEBREX [Concomitant]
     Active Substance: CELECOXIB
     Dosage: 200 MILLIGRAM DAILY;
  7. PREVACID [Concomitant]
     Active Substance: LANSOPRAZOLE
     Dosage: 30 MILLIGRAM DAILY;
  8. FLONASE [Concomitant]
     Active Substance: FLUTICASONE PROPIONATE
     Dosage: 50 MICROGRAM DAILY;
     Route: 045
  9. MULTIVITAMIN [Concomitant]
     Active Substance: VITAMINS
  10. CARDURA [Concomitant]
     Active Substance: DOXAZOSIN MESYLATE
  11. BUMEX [Concomitant]
     Active Substance: BUMETANIDE
     Dosage: 1 MILLIGRAM DAILY;
  12. POT CHLORIDE [Concomitant]
     Active Substance: POTASSIUM CHLORIDE
  13. GLUCOTROL [Concomitant]
     Active Substance: GLIPIZIDE
     Dosage: 10 MILLIGRAM DAILY;
  14. METAXALONE. [Concomitant]
     Active Substance: METAXALONE
     Dosage: 1600 MILLIGRAM DAILY;
  15. XOPENEX [Concomitant]
     Active Substance: LEVALBUTEROL HYDROCHLORIDE
     Dosage: 5 MILLIGRAM DAILY; IH SOL
  16. ASA [Concomitant]
     Active Substance: ASPIRIN
     Dosage: 162 MILLIGRAM DAILY;
  17. ZETIA [Concomitant]
     Active Substance: EZETIMIBE
     Dosage: 10 MILLIGRAM DAILY;
  18. ALLEGRA [Concomitant]
     Active Substance: FEXOFENADINE HYDROCHLORIDE
     Dosage: 180 MILLIGRAM DAILY;
  19. SYMBICORT [Concomitant]
     Active Substance: BUDESONIDE\FORMOTEROL FUMARATE DIHYDRATE
     Dosage: 160/4.5, PUFFS
  20. SINGULAIR [Concomitant]
     Active Substance: MONTELUKAST SODIUM
     Dosage: 10 MILLIGRAM DAILY;
  21. AVAPRO [Concomitant]
     Active Substance: IRBESARTAN
  22. LOPRESSOR [Concomitant]
     Active Substance: METOPROLOL TARTRATE
     Dosage: 100 MILLIGRAM DAILY;
  23. METFORMIN [Concomitant]
     Active Substance: METFORMIN HYDROCHLORIDE
     Dosage: 2000 MILLIGRAM DAILY;
  24. SPIRIVA [Concomitant]
     Active Substance: TIOTROPIUM BROMIDE MONOHYDRATE
     Dosage: 1 CAP. INHAL.AM
  25. INVOKANA [Concomitant]
     Active Substance: CANAGLIFLOZIN
  26. XOLAIR [Concomitant]
     Active Substance: OMALIZUMAB
     Dosage: 1X/MO
  27. XOPENEX HFA [Concomitant]
     Active Substance: LEVALBUTEROL TARTRATE
     Dosage: 2 PUFFS Q 6 HRS. PM-SOB
  28. ROBITUSSIN (GUAIFENESIN) [Concomitant]
     Active Substance: GUAIFENESIN
     Dosage: AC 1 TSP. TID-PM COUGH

REACTIONS (4)
  - Oral candidiasis [Recovered/Resolved]
  - Oral pain [Recovered/Resolved]
  - Oral mucosal blistering [Recovered/Resolved]
  - Lip blister [Recovered/Resolved]
